FAERS Safety Report 4855934-0 (Version None)
Quarter: 2005Q4

REPORT INFORMATION
  Report Type: 
  Country: None (occurrence: None)
  Receive Date: 20051216
  Receipt Date: 20051212
  Transmission Date: 20060501
  Serious: Yes (Hospitalization)
  Sender: FDA-Public Use
  Company Number: JP-JPN-A20053047

PATIENT
  Age: 82 Year
  Sex: Female

DRUGS (3)
  1. PAXIL [Suspect]
     Indication: DEPRESSION
     Dosage: 15MG TWICE PER DAY
     Route: 048
     Dates: start: 20030731, end: 20051125
  2. PLETAL [Concomitant]
     Route: 048
     Dates: start: 20051101, end: 20051125
  3. DEPAS [Concomitant]
     Route: 048

REACTIONS (1)
  - NEUROLEPTIC MALIGNANT SYNDROME [None]
